FAERS Safety Report 4678504-6 (Version None)
Quarter: 2005Q2

REPORT INFORMATION
  Report Type: 
  Country: None (occurrence: None)
  Receive Date: 20050601
  Receipt Date: 20050520
  Transmission Date: 20051028
  Serious: Yes (Hospitalization, Other)
  Sender: FDA-Public Use
  Company Number: JP-MERCK-0505USA03083

PATIENT
  Age: 60 Year
  Sex: Male

DRUGS (5)
  1. PEPCID [Suspect]
     Route: 048
     Dates: end: 20030404
  2. PIPERACILLIN [Suspect]
     Route: 065
     Dates: start: 20030303, end: 20030314
  3. COZAAR [Suspect]
     Route: 048
     Dates: end: 20030321
  4. LOXOPROFEN [Suspect]
     Route: 065
     Dates: end: 20030404
  5. [THERAPY UNSPECIFIED] [Suspect]
     Route: 065
     Dates: start: 20030321, end: 20030420

REACTIONS (3)
  - BLOOD LACTATE DEHYDROGENASE INCREASED [None]
  - COOMBS NEGATIVE HAEMOLYTIC ANAEMIA [None]
  - SHUNT THROMBOSIS [None]
